FAERS Safety Report 7776951-7 (Version None)
Quarter: 2011Q3

REPORT INFORMATION
  Report Type: 
  Country: None (occurrence: None)
  Receive Date: 20110926
  Receipt Date: 20110919
  Transmission Date: 20111222
  Serious: Yes (Death, Hospitalization, Other)
  Sender: FDA-Public Use
  Company Number: US-ASTRAZENECA-2011SE24103

PATIENT
  Age: 83 Year
  Sex: Male
  Weight: 76.2 kg

DRUGS (2)
  1. ZOLADEX [Suspect]
     Route: 058
     Dates: start: 20100212
  2. ZOLADEX [Suspect]
     Indication: PROSTATE CANCER
     Route: 058
     Dates: start: 20100115

REACTIONS (16)
  - ACUTE MYOCARDIAL INFARCTION [None]
  - CARDIOMYOPATHY [None]
  - ATRIAL FIBRILLATION [None]
  - POLYMYALGIA RHEUMATICA [None]
  - FALL [None]
  - PULMONARY HYPERTENSION [None]
  - OCULAR DISCOMFORT [None]
  - CORONARY ARTERY DISEASE [None]
  - CHRONIC OBSTRUCTIVE PULMONARY DISEASE [None]
  - CAROTID ARTERY STENOSIS [None]
  - CARDIAC FAILURE CONGESTIVE [None]
  - DIZZINESS [None]
  - CHEST PAIN [None]
  - CORONARY ARTERY STENOSIS [None]
  - CONVULSION [None]
  - SKELETAL INJURY [None]
